FAERS Safety Report 8391779-5 (Version None)
Quarter: 2012Q2

REPORT INFORMATION
  Report Type: 
  Country: None (occurrence: None)
  Receive Date: 20120529
  Receipt Date: 20120524
  Transmission Date: 20120825
  Serious: Yes (Other)
  Sender: FDA-Public Use
  Company Number: CA-ROCHE-1072421

PATIENT
  Age: 44 Year
  Sex: Female

DRUGS (2)
  1. XELODA [Suspect]
     Indication: PRODUCT USED FOR UNKNOWN INDICATION
     Route: 065
  2. TYKERB [Suspect]
     Indication: PRODUCT USED FOR UNKNOWN INDICATION
     Route: 048

REACTIONS (5)
  - BREAST CANCER [None]
  - DRUG INEFFECTIVE [None]
  - DRY SKIN [None]
  - DIARRHOEA [None]
  - DISEASE PROGRESSION [None]
